FAERS Safety Report 9105554 (Version 1)
Quarter: 2013Q1

REPORT INFORMATION
  Report Type: Spontaneous
  Country: US (occurrence: US)
  Receive Date: 20130220
  Receipt Date: 20130220
  Transmission Date: 20140127
  Serious: Yes (Other)
  Sender: FDA-Public Use
  Company Number: US-ASTRAZENECA-2013SE10732

PATIENT
  Age: 65 Year
  Sex: Female
  Weight: 43.1 kg

DRUGS (4)
  1. NEXIUM [Suspect]
     Indication: GASTROOESOPHAGEAL REFLUX DISEASE
     Route: 048
     Dates: start: 2008, end: 201212
  2. NEXIUM [Suspect]
     Indication: GASTROOESOPHAGEAL REFLUX DISEASE
     Route: 048
     Dates: start: 201212
  3. SYNTHETIC MARIJUANA [Concomitant]
     Indication: ANXIETY
  4. SYNTHETIC MARIJUANA [Concomitant]
     Indication: DECREASED APPETITE

REACTIONS (1)
  - Oesophageal cancer metastatic [Unknown]
